FAERS Safety Report 11216573 (Version 1)
Quarter: 2015Q2

REPORT INFORMATION
  Report Type: Spontaneous
  Country: JP (occurrence: JP)
  Receive Date: 20150624
  Receipt Date: 20150624
  Transmission Date: 20150821
  Serious: Yes (Other)
  Sender: FDA-Public Use
  Company Number: JP-ABBVIE-15P-087-1413646-00

PATIENT

DRUGS (1)
  1. VALPROIC ACID. [Suspect]
     Active Substance: VALPROIC ACID
     Indication: EPILEPSY
     Route: 065

REACTIONS (5)
  - Glycosuria [Recovering/Resolving]
  - Haematuria [Recovering/Resolving]
  - Beta 2 microglobulin urine [Recovering/Resolving]
  - Proteinuria [Recovering/Resolving]
  - Renal tubular disorder [Recovering/Resolving]
